FAERS Safety Report 4449150-4 (Version None)
Quarter: 2004Q3

REPORT INFORMATION
  Report Type: 
  Country: None (occurrence: None)
  Receive Date: 20040910
  Receipt Date: 20040902
  Transmission Date: 20050211
  Serious: Yes (Hospitalization)
  Sender: FDA-Public Use
  Company Number: TPA2004A01084

PATIENT
  Age: 71 Year
  Sex: Female
  Weight: 63.5036 kg

DRUGS (10)
  1. ACTOS [Suspect]
     Dosage: PER ORAL
     Route: 048
  2. HUMALOG [Suspect]
  3. NOVOLIN 85/15 [Suspect]
     Dates: start: 19940101
  4. INSULIN, ANIMAL (INSULIN/N/A/) [Suspect]
  5. LANTUS [Suspect]
     Dosage: 40 IU, IN THE MORNING
  6. GLUCOTROL [Suspect]
  7. PRINIVIL [Concomitant]
  8. NORVASC [Concomitant]
  9. LIPITOR [Concomitant]
  10. AMLODOPINE (AMLODIPINE) [Concomitant]

REACTIONS (7)
  - BLOOD GLUCOSE DECREASED [None]
  - BLOOD GLUCOSE INCREASED [None]
  - CARDIAC FAILURE CONGESTIVE [None]
  - HEART RATE ABNORMAL [None]
  - MACULAR DEGENERATION [None]
  - MYOCARDIAL INFARCTION [None]
  - PANCREATIC DISORDER [None]
